FAERS Safety Report 17536305 (Version 1)
Quarter: 2020Q1

REPORT INFORMATION
  Report Type: Spontaneous
  Country: US (occurrence: US)
  Receive Date: 20200313
  Receipt Date: 20200313
  Transmission Date: 20200409
  Serious: No
  Sender: FDA-Public Use
  Company Number: US-TEVA-2020-US-1201253

PATIENT
  Age: 76 Year
  Sex: Female
  Weight: 58.96 kg

DRUGS (6)
  1. LEVOXACIN [Concomitant]
     Active Substance: LEVOFLOXACIN
  2. PRAVASTATIN. [Concomitant]
     Active Substance: PRAVASTATIN
  3. LISINOPRIL. [Concomitant]
     Active Substance: LISINOPRIL
  4. AMOXICILLIN. [Concomitant]
     Active Substance: AMOXICILLIN
     Dates: start: 20200302
  5. FEXOFENADINE [Suspect]
     Active Substance: FEXOFENADINE HYDROCHLORIDE
     Indication: UPPER-AIRWAY COUGH SYNDROME
     Dosage: 180 MILLIGRAM DAILY; FEXOFENADINE 180 MG, QHS
     Route: 048
     Dates: start: 20200226, end: 20200303
  6. FEXOFENADINE [Suspect]
     Active Substance: FEXOFENADINE HYDROCHLORIDE
     Indication: PARANASAL SINUS DISCOMFORT

REACTIONS (2)
  - Drug ineffective for unapproved indication [Unknown]
  - Product administered to patient of inappropriate age [Unknown]

NARRATIVE: CASE EVENT DATE: 20200226
